FAERS Safety Report 23665854 (Version 1)
Quarter: 2024Q1

REPORT INFORMATION
  Report Type: Spontaneous
  Country: CN (occurrence: CN)
  Receive Date: 20240323
  Receipt Date: 20240323
  Transmission Date: 20240409
  Serious: Yes (Other)
  Sender: FDA-Public Use
  Company Number: None

PATIENT
  Age: 53 Year
  Sex: Female

DRUGS (8)
  1. CYCLOPHOSPHAMIDE [Suspect]
     Active Substance: CYCLOPHOSPHAMIDE
     Indication: Breast cancer female
     Dosage: 0.95 G, ONCE IN 21 DAYS, FIRST CHEMOTHERAPY
     Route: 041
     Dates: start: 20231221
  2. CYCLOPHOSPHAMIDE [Suspect]
     Active Substance: CYCLOPHOSPHAMIDE
     Dosage: UNK, SECOND CHEMOTHERAPY
     Route: 065
     Dates: start: 20240111
  3. CYCLOPHOSPHAMIDE [Suspect]
     Active Substance: CYCLOPHOSPHAMIDE
     Dosage: UNK, THIRD CHEMOTHERAPY
     Route: 065
     Dates: start: 20240201
  4. MESNA [Suspect]
     Active Substance: MESNA
     Indication: Prophylaxis
     Dosage: INJECTION
     Route: 041
  5. MESNA [Suspect]
     Active Substance: MESNA
     Indication: Urinary tract toxicity
  6. DOCETAXEL [Suspect]
     Active Substance: DOCETAXEL\DOCETAXEL ANHYDROUS
     Indication: Breast cancer female
     Dosage: 120 MG, ONCE IN 21 DAYS, FIRST CHEMOTHERAPY
     Route: 041
     Dates: start: 20231221
  7. DOCETAXEL [Suspect]
     Active Substance: DOCETAXEL\DOCETAXEL ANHYDROUS
     Dosage: SECOND CHEMOTHERAPY
     Route: 065
     Dates: start: 20240111
  8. DOCETAXEL [Suspect]
     Active Substance: DOCETAXEL\DOCETAXEL ANHYDROUS
     Dosage: THIRD CHEMOTHERAPY
     Route: 065
     Dates: start: 20240201

REACTIONS (4)
  - Urinary tract infection [Recovering/Resolving]
  - Micturition urgency [Recovered/Resolved]
  - Pollakiuria [Recovered/Resolved]
  - Dysuria [Recovered/Resolved]

NARRATIVE: CASE EVENT DATE: 20231228
